FAERS Safety Report 7310687-1 (Version None)
Quarter: 2011Q1

REPORT INFORMATION
  Report Type: 
  Country: None (occurrence: None)
  Receive Date: 20110224
  Receipt Date: 20110214
  Transmission Date: 20110831
  Serious: Yes (Life-Threatening, Hospitalization)
  Sender: FDA-Public Use
  Company Number: US-SANOFI-AVENTIS-2010SA027823

PATIENT
  Age: 63 Year
  Sex: Male
  Weight: 104.5 kg

DRUGS (24)
  1. DEXAMETHASONE [Concomitant]
     Indication: PROPHYLAXIS
     Dates: start: 20100401, end: 20100422
  2. DEXAMETHASONE [Concomitant]
     Dates: start: 20100422, end: 20100422
  3. DIPHENHYDRAMINE [Concomitant]
     Dates: start: 20100422, end: 20100422
  4. CABAZITAXEL [Suspect]
     Route: 042
     Dates: start: 20100422, end: 20100422
  5. CISPLATIN [Suspect]
     Route: 042
     Dates: start: 20100401, end: 20100401
  6. CISPLATIN [Suspect]
     Route: 042
     Dates: start: 20100422, end: 20100422
  7. CISPLATIN [Suspect]
     Route: 042
     Dates: start: 20100510, end: 20100510
  8. APREPITANT [Concomitant]
     Dates: start: 20100423, end: 20100423
  9. APREPITANT [Concomitant]
     Dates: start: 20100424, end: 20100424
  10. CABAZITAXEL [Suspect]
     Route: 042
     Dates: start: 20100510, end: 20100510
  11. APREPITANT [Concomitant]
     Dates: start: 20100422, end: 20100422
  12. LOVENOX [Concomitant]
     Indication: DEEP VEIN THROMBOSIS
  13. CELEBREX [Concomitant]
  14. WARFARIN [Concomitant]
  15. MULTI-VITAMINS [Concomitant]
  16. DIPHENHYDRAMINE [Concomitant]
     Indication: PROPHYLAXIS
     Dates: start: 20100401, end: 20100422
  17. CYMBALTA [Concomitant]
  18. FAMOTIDINE [Concomitant]
     Indication: PROPHYLAXIS
     Dates: start: 20100401, end: 20100422
  19. ALOXI [Concomitant]
     Indication: PROPHYLAXIS
     Dates: start: 20100401, end: 20100422
  20. CIPROFLOXACIN [Concomitant]
     Dates: start: 20100506
  21. FLAGYL [Concomitant]
     Dates: start: 20100506
  22. CABAZITAXEL [Suspect]
     Route: 042
     Dates: start: 20100401, end: 20100401
  23. HYDROCHLOROTHIAZIDE [Concomitant]
  24. NORMAL SALINE [Concomitant]
     Indication: PROPHYLAXIS
     Route: 042
     Dates: start: 20100401, end: 20100422

REACTIONS (4)
  - DUODENAL ULCER [None]
  - LARGE INTESTINAL HAEMORRHAGE [None]
  - HAEMORRHAGIC ANAEMIA [None]
  - SMALL INTESTINAL HAEMORRHAGE [None]
